FAERS Safety Report 24736657 (Version 1)
Quarter: 2024Q4

REPORT INFORMATION
  Report Type: Spontaneous
  Country: US (occurrence: None)
  Receive Date: 20241213
  Receipt Date: 20241213
  Transmission Date: 20250114
  Serious: Yes (Hospitalization, Disabling)
  Sender: Public
  Company Number: None

PATIENT
  Age: 20 Year
  Sex: Male
  Weight: 94.5 kg

DRUGS (1)
  1. VILOXAZINE [Suspect]
     Active Substance: VILOXAZINE

REACTIONS (6)
  - Headache [None]
  - Vomiting [None]
  - Photophobia [None]
  - Hyperacusis [None]
  - Hypoaesthesia [None]
  - Migraine [None]

NARRATIVE: CASE EVENT DATE: 20240817
